FAERS Safety Report 9067591 (Version 2)
Quarter: 2013Q1

REPORT INFORMATION
  Report Type: Spontaneous
  Country: FR (occurrence: FR)
  Receive Date: 20130206
  Receipt Date: 20130222
  Transmission Date: 20140127
  Serious: Yes (Hospitalization)
  Sender: FDA-Public Use
  Company Number: FR-BAYER-2013-013830

PATIENT
  Sex: Female

DRUGS (2)
  1. MIRENA [Suspect]
     Dosage: 20 MCG/24HR, CONT
     Route: 015
     Dates: start: 20121024
  2. BETADINE [Concomitant]
     Indication: PROPHYLAXIS
     Dosage: UNK UNK, ONCE
     Dates: start: 20121023, end: 20121023

REACTIONS (5)
  - Staphylococcal infection [None]
  - Infected cyst [None]
  - Pain [None]
  - Vaginal haemorrhage [None]
  - Vulvovaginal mycotic infection [Recovering/Resolving]
